FAERS Safety Report 24636722 (Version 1)
Quarter: 2024Q4

REPORT INFORMATION
  Report Type: Spontaneous
  Country: ES (occurrence: ES)
  Receive Date: 20241119
  Receipt Date: 20241119
  Transmission Date: 20250115
  Serious: Yes (Other)
  Sender: SANDOZ
  Company Number: ES-GLAXOSMITHKLINE-ES2014GSK046252

PATIENT
  Age: 61 Year
  Sex: Male

DRUGS (12)
  1. AMIKACIN SULFATE [Suspect]
     Active Substance: AMIKACIN SULFATE
     Indication: Bacterial infection
     Dosage: UNK
     Route: 065
     Dates: start: 2009
  2. AMPICILLIN [Suspect]
     Active Substance: AMPICILLIN
     Indication: Bacterial infection
     Route: 065
  3. CEFTAZIDIME [Suspect]
     Active Substance: CEFTAZIDIME
     Indication: Bacterial infection
     Dosage: UNK
     Route: 065
     Dates: start: 2009
  4. COLISTIN [Suspect]
     Active Substance: COLISTIN
     Indication: Bacterial infection
     Route: 065
  5. DORIPENEM [Suspect]
     Active Substance: DORIPENEM
     Indication: Bacterial infection
     Dosage: UNK
     Route: 065
     Dates: start: 2009
  6. FLUCONAZOLE [Suspect]
     Active Substance: FLUCONAZOLE
     Indication: Antifungal prophylaxis
     Dosage: 100 MG, QD
     Route: 065
  7. FOSFOMYCIN [Suspect]
     Active Substance: FOSFOMYCIN
     Indication: Bacterial infection
     Dosage: UNK
     Route: 065
     Dates: start: 2009
  8. MEROPENEM [Suspect]
     Active Substance: MEROPENEM
     Indication: Bacterial infection
     Dosage: UNK
     Route: 042
     Dates: start: 2009
  9. METRONIDAZOLE [Suspect]
     Active Substance: METRONIDAZOLE
     Indication: Bacterial infection
     Route: 065
  10. PIPERACILLIN AND TAZOBACTAM [Suspect]
     Active Substance: PIPERACILLIN SODIUM\TAZOBACTAM SODIUM
     Indication: Product used for unknown indication
     Dosage: UNK
     Route: 065
     Dates: start: 2009
  11. TEICOPLANIN [Suspect]
     Active Substance: TEICOPLANIN
     Indication: Bacterial infection
     Dosage: UNK
     Route: 065
     Dates: start: 2009
  12. VANCOMYCIN [Suspect]
     Active Substance: VANCOMYCIN
     Indication: Bacterial infection
     Dosage: UNK
     Route: 065
     Dates: start: 2009

REACTIONS (6)
  - Systemic candida [Recovered/Resolved]
  - Sepsis [Recovered/Resolved]
  - Pathogen resistance [Unknown]
  - Drug resistance [Unknown]
  - Candida infection [Recovered/Resolved]
  - Pyrexia [Recovered/Resolved]
